FAERS Safety Report 5376922-4 (Version None)
Quarter: 2007Q3

REPORT INFORMATION
  Report Type: 
  Country: None (occurrence: None)
  Receive Date: 20070703
  Receipt Date: 20070622
  Transmission Date: 20080115
  Serious: Yes (Hospitalization)
  Sender: FDA-Public Use
  Company Number: FR-AVENTIS-200712090FR

PATIENT
  Age: 43 Year
  Sex: Male

DRUGS (11)
  1. TAXOTERE [Suspect]
     Route: 042
     Dates: start: 20070305, end: 20070423
  2. CISPLATIN [Suspect]
     Route: 042
     Dates: start: 20070305, end: 20070423
  3. FLUOROURACIL [Suspect]
     Route: 042
     Dates: start: 20070305, end: 20070427
  4. NEXIUM [Concomitant]
     Indication: DRUG USE FOR UNKNOWN INDICATION
  5. ALLOPURINOL [Concomitant]
     Indication: DRUG USE FOR UNKNOWN INDICATION
  6. FUNGIZONE [Concomitant]
     Indication: DRUG USE FOR UNKNOWN INDICATION
  7. ZOPICLONE [Concomitant]
     Indication: DRUG USE FOR UNKNOWN INDICATION
  8. ACTISKENAN [Concomitant]
     Indication: DRUG USE FOR UNKNOWN INDICATION
  9. DURAGESIC-100 [Concomitant]
     Indication: DRUG USE FOR UNKNOWN INDICATION
  10. NICORETTE [Concomitant]
     Indication: DRUG USE FOR UNKNOWN INDICATION
  11. NEORECORMON [Concomitant]
     Indication: DRUG USE FOR UNKNOWN INDICATION

REACTIONS (1)
  - RENAL FAILURE ACUTE [None]
